FAERS Safety Report 11271368 (Version 3)
Quarter: 2020Q1

REPORT INFORMATION
  Report Type: Spontaneous
  Country: FR (occurrence: FR)
  Receive Date: 20150714
  Receipt Date: 20200123
  Transmission Date: 20200409
  Serious: Yes (Hospitalization, Congenital Anomaly, Other)
  Sender: FDA-Public Use
  Company Number: FR-ABBVIE-15P-056-1425196-00

PATIENT
  Sex: Male
  Weight: 3.6 kg

DRUGS (3)
  1. DEPAKINE CHRONO [Suspect]
     Active Substance: VALPROATE SODIUM
     Indication: VENTRICULAR SEPTAL DEFECT
     Route: 064
     Dates: start: 20020704, end: 20030211
  2. DEPAKINE CHRONO [Suspect]
     Active Substance: VALPROATE SODIUM
     Indication: LIGAMENT DISORDER
  3. DEPAKINE CHRONO [Suspect]
     Active Substance: VALPROATE SODIUM
     Indication: MATERNAL EXPOSURE TIMING UNSPECIFIED
     Route: 064
     Dates: start: 20020525, end: 20020703

REACTIONS (70)
  - Multiple congenital abnormalities [Not Recovered/Not Resolved]
  - Congenital hand malformation [Not Recovered/Not Resolved]
  - Coagulopathy [Not Recovered/Not Resolved]
  - Irritable bowel syndrome [Unknown]
  - Diarrhoea [Unknown]
  - Dissociation [Unknown]
  - Tooth disorder [Unknown]
  - Nasal disorder [Unknown]
  - Psychomotor retardation [Unknown]
  - Developmental delay [Unknown]
  - Ventricular septal defect [Unknown]
  - Psychotic disorder [Unknown]
  - Affective disorder [Unknown]
  - Mental disorder [Unknown]
  - Chest pain [Unknown]
  - Dyspnoea [Unknown]
  - Food refusal [Unknown]
  - Aggression [Unknown]
  - Behaviour disorder [Unknown]
  - Synovitis [Unknown]
  - Hallucinations, mixed [Unknown]
  - Pain in extremity [Unknown]
  - Synovitis [Unknown]
  - Reduced facial expression [Unknown]
  - Speech disorder [Unknown]
  - Congenital foot malformation [Not Recovered/Not Resolved]
  - Atrial septal defect [Not Recovered/Not Resolved]
  - Psychomotor skills impaired [Unknown]
  - Insomnia [Unknown]
  - Hallucination, synaesthetic [Unknown]
  - Foot deformity [Unknown]
  - Pharyngeal disorder [Unknown]
  - Headache [Unknown]
  - Speech disorder developmental [Unknown]
  - Tooth avulsion [Unknown]
  - Sleep disorder [Unknown]
  - Balance disorder [Unknown]
  - Enuresis [Unknown]
  - Regurgitation [Unknown]
  - Abdominal pain [Unknown]
  - Vomiting [Unknown]
  - Intervertebral disc disorder [Unknown]
  - Amyotrophy [Unknown]
  - Educational problem [Unknown]
  - Language disorder [Unknown]
  - Eyelid ptosis congenital [Unknown]
  - Learning disorder [Unknown]
  - Disturbance in attention [Unknown]
  - Dysgraphia [Unknown]
  - Anxiety [Unknown]
  - Dysmorphism [Unknown]
  - Prognathism [Unknown]
  - Ear infection [Unknown]
  - Decreased appetite [Unknown]
  - Osteochondroma [Not Recovered/Not Resolved]
  - Foetal exposure during pregnancy [Unknown]
  - Lymphadenopathy [Unknown]
  - Oral herpes [Unknown]
  - Cryptorchism [Unknown]
  - Fine motor skill dysfunction [Unknown]
  - Joint laxity [Unknown]
  - Joint dislocation [Unknown]
  - Respiratory disorder [Unknown]
  - Crying [Unknown]
  - Delirium [Not Recovered/Not Resolved]
  - Ligament laxity [Unknown]
  - Intellectual disability [Unknown]
  - Laryngitis [Unknown]
  - Ear disorder [Unknown]
  - Gastrointestinal disorder [Unknown]

NARRATIVE: CASE EVENT DATE: 200302
